FAERS Safety Report 21054463 (Version 1)
Quarter: 2022Q3

REPORT INFORMATION
  Report Type: Spontaneous
  Country: CH (occurrence: CH)
  Receive Date: 20220707
  Receipt Date: 20220707
  Transmission Date: 20221027
  Serious: Yes (Hospitalization, Other)
  Sender: FDA-Public Use
  Company Number: None

PATIENT
  Age: 77 Year
  Sex: Male

DRUGS (22)
  1. DIFLUCAN [Suspect]
     Active Substance: FLUCONAZOLE
     Indication: Oesophageal candidiasis
     Dosage: 400 MG, 1X/DAY
     Route: 042
     Dates: start: 20220218, end: 20220220
  2. TAXOL [Suspect]
     Active Substance: PACLITAXEL
     Dosage: 100 MG, CYCLIC (CUMULATIVE 5 X 100 MG)
     Route: 042
     Dates: start: 20220112, end: 20220210
  3. CARBOPLATIN [Suspect]
     Active Substance: CARBOPLATIN
     Dosage: 180 MG, CYCLIC (CUMULATIVE 5 X 180 MG)
     Route: 042
     Dates: start: 20220112, end: 20220210
  4. NOVALGIN (METAMIZOLE SODIUM) [Suspect]
     Active Substance: METAMIZOLE SODIUM
     Dosage: 1 DF, AS NEEDED (DROPS)
     Route: 048
     Dates: start: 20220219, end: 20220303
  5. DAFALGAN [Suspect]
     Active Substance: ACETAMINOPHEN
     Dosage: 1 DF, AS NEEDED
     Route: 048
     Dates: start: 20220218, end: 20220306
  6. OXYCODONE HYDROCHLORIDE [Suspect]
     Active Substance: OXYCODONE HYDROCHLORIDE
     Dosage: 5 MG, AS NEEDED
     Route: 048
     Dates: start: 20220217, end: 20220301
  7. NALOXONE HYDROCHLORIDE\OXYCODONE HYDROCHLORIDE [Suspect]
     Active Substance: NALOXONE HYDROCHLORIDE\OXYCODONE HYDROCHLORIDE
     Dosage: 1 DF, 2X/DAY (1-0-1)
     Route: 048
     Dates: start: 20220218, end: 20220225
  8. SOTROVIMAB [Suspect]
     Active Substance: SOTROVIMAB
     Dosage: 500 MG, SINGLE
     Route: 042
     Dates: start: 20220224, end: 20220224
  9. ESOMEPRAZOLE [Concomitant]
     Active Substance: ESOMEPRAZOLE
     Dosage: 40 MG, 1X/DAY (1-0-0)
     Route: 048
  10. PANTOPRAZOLE [Concomitant]
     Active Substance: PANTOPRAZOLE
     Dosage: 40 MG, 1X/DAY (1-0-0)
     Route: 048
     Dates: start: 20220224
  11. DEXAMETHASONE [Concomitant]
     Active Substance: DEXAMETHASONE
     Dosage: 6 MG, 1X/DAY (1-0-0)
     Route: 048
     Dates: start: 20220225, end: 20220307
  12. DEXAMETHASONE [Concomitant]
     Active Substance: DEXAMETHASONE
     Dosage: UNK (TAPERED OFF)
     Dates: end: 20220311
  13. ROSUVASTATIN [Concomitant]
     Active Substance: ROSUVASTATIN
     Dosage: 10 MG, 1X/DAY (1-0-0)
     Route: 048
  14. ASPIRIN [Concomitant]
     Active Substance: ASPIRIN
     Dosage: 100 MG, 1X/DAY (1-0-0)
     Route: 048
  15. ALLOPURINOL [Concomitant]
     Active Substance: ALLOPURINOL
     Dosage: 100 MG, 1X/DAY (1-0-0)
     Route: 048
  16. CANDESARTAN [Concomitant]
     Active Substance: CANDESARTAN
     Dosage: 12 MG, 1X/DAY (1.5-0-0)
     Route: 048
     Dates: end: 20220217
  17. CANDESARTAN [Concomitant]
     Active Substance: CANDESARTAN
     Dosage: 12 MG, 1X/DAY (1.5-0-0)
     Route: 048
     Dates: start: 20220227, end: 20220301
  18. CANDESARTAN [Concomitant]
     Active Substance: CANDESARTAN
     Dosage: 4 MG, DAILY
     Route: 048
     Dates: start: 20220308
  19. DUOFER [ASCORBIC ACID;FERROUS FUMARATE;FERROUS GLUCONATE] [Concomitant]
     Dosage: 300 MG, 1X/DAY (1-0-0)
     Route: 048
     Dates: end: 20220217
  20. LAXIPEG [Concomitant]
     Dosage: 10 G, 2X/DAY (1-0-1)
     Route: 048
     Dates: start: 20220222
  21. THIAMINE HYDROCHLORIDE [Concomitant]
     Active Substance: THIAMINE HYDROCHLORIDE
     Dosage: 300 MG, 1X/DAY (1-0-0)
     Route: 048
     Dates: start: 20220219
  22. ENOXAPARIN SODIUM [Concomitant]
     Active Substance: ENOXAPARIN SODIUM
     Dosage: 40 MG, 1X/DAY (0-0-1)
     Route: 058
     Dates: start: 20220217, end: 20220308

REACTIONS (7)
  - Liver disorder [Recovered/Resolved]
  - Transaminases increased [Recovered/Resolved]
  - Organising pneumonia [Recovered/Resolved]
  - Respiratory failure [Recovered/Resolved]
  - Radiation pneumonitis [Recovered/Resolved]
  - Staphylococcal infection [Unknown]
  - Atrial fibrillation [Unknown]

NARRATIVE: CASE EVENT DATE: 20220226
